FAERS Safety Report 5904929-4 (Version None)
Quarter: 2008Q3

REPORT INFORMATION
  Report Type: 
  Country: None (occurrence: None)
  Receive Date: 20080909
  Receipt Date: 20080506
  Transmission Date: 20090109
  Serious: Yes (Life-Threatening, Hospitalization, Disabling)
  Sender: FDA-Public Use
  Company Number: 163-20785-08031763

PATIENT
  Age: 72 Year
  Sex: Female

DRUGS (2)
  1. THALOMID [Suspect]
     Indication: MULTIPLE MYELOMA
     Dosage: 200 MG, 1 IN 1 D, ORAL
     Route: 048
     Dates: start: 20071022, end: 20080301
  2. DEXAMETHASONE TAB [Concomitant]

REACTIONS (7)
  - DEEP VEIN THROMBOSIS [None]
  - NEURALGIA [None]
  - NEUROPATHY PERIPHERAL [None]
  - OEDEMA PERIPHERAL [None]
  - PARAESTHESIA [None]
  - PULMONARY EMBOLISM [None]
  - SWELLING [None]
